FAERS Safety Report 6472140-7 (Version None)
Quarter: 2009Q4

REPORT INFORMATION
  Report Type: 
  Country: None (occurrence: None)
  Receive Date: 20091203
  Receipt Date: 20080402
  Transmission Date: 20100525
  Serious: Yes (Hospitalization)
  Sender: FDA-Public Use
  Company Number: TR-ELI_LILLY_AND_COMPANY-TR200804003757

PATIENT
  Sex: Male

DRUGS (5)
  1. HUMULIN 70/30 [Suspect]
     Indication: TYPE 2 DIABETES MELLITUS
     Dosage: 28 U, EACH MORNING
     Route: 058
  2. HUMULIN 70/30 [Suspect]
     Dosage: 18 U, EACH EVENING
     Route: 058
  3. ANTI-DIABETICS [Concomitant]
     Dosage: UNK, DAILY (1/D)
  4. OTHER DRUGS FOR TREATMENT OF TUBERCULOSIS [Concomitant]
     Dosage: UNK, 3/D
  5. ANTIHYPERTENSIVES [Concomitant]
     Dosage: UNK, DAILY (1/D)

REACTIONS (3)
  - BLOOD GLUCOSE FLUCTUATION [None]
  - PULMONARY OEDEMA [None]
  - TREMOR [None]
